FAERS Safety Report 23390633 (Version 1)
Quarter: 2024Q1

REPORT INFORMATION
  Report Type: Report from Study
  Country: US (occurrence: US)
  Receive Date: 20240111
  Receipt Date: 20240111
  Transmission Date: 20240409
  Serious: No
  Sender: FDA-Public Use
  Company Number: US-TAKEDA-US202026045

PATIENT
  Sex: Female
  Weight: 63 kg

DRUGS (4)
  1. HUMAN IMMUNOGLOBULIN G [Suspect]
     Active Substance: HUMAN IMMUNOGLOBULIN G
     Indication: Immunodeficiency common variable
     Dosage: 25 GRAM
     Route: 042
  2. HUMAN IMMUNOGLOBULIN G [Suspect]
     Active Substance: HUMAN IMMUNOGLOBULIN G
     Indication: Immunodeficiency common variable
     Dosage: 25 GRAM
     Route: 042
  3. HUMAN IMMUNOGLOBULIN G [Suspect]
     Active Substance: HUMAN IMMUNOGLOBULIN G
     Dosage: 30 GRAM
     Route: 050
  4. HUMAN IMMUNOGLOBULIN G [Suspect]
     Active Substance: HUMAN IMMUNOGLOBULIN G
     Dosage: 30 GRAM
     Route: 050

REACTIONS (10)
  - Dysphagia [Unknown]
  - Injection site reaction [Unknown]
  - Flushing [Unknown]
  - Pruritus [Recovered/Resolved]
  - Chills [Unknown]
  - Urticaria [Recovered/Resolved]
  - Incorrect product administration duration [Unknown]
  - Product availability issue [Unknown]
  - Product reconstitution quality issue [Unknown]
  - Incorrect drug administration rate [Unknown]
